FAERS Safety Report 4384235-2 (Version None)
Quarter: 2004Q2

REPORT INFORMATION
  Report Type: 
  Country: None (occurrence: None)
  Receive Date: 20040607
  Receipt Date: 20031111
  Transmission Date: 20050107
  Serious: Yes (Other)
  Sender: FDA-Public Use
  Company Number: 333246

PATIENT
  Sex: Female
  Weight: 4.1 kg

DRUGS (2)
  1. ACCUTANE [Suspect]
     Indication: ACNE
     Dosage: 20 MG DAILY ORAL
     Route: 048
     Dates: start: 20020927, end: 20030228
  2. JASMINE (DROSPIRENONE/ETHINYL ESTRADIOL) [Concomitant]

REACTIONS (1)
  - LIVE BIRTH [None]
